FAERS Safety Report 6131813-6 (Version None)
Quarter: 2009Q1

REPORT INFORMATION
  Report Type: 
  Country: None (occurrence: None)
  Receive Date: 20090325
  Receipt Date: 20090316
  Transmission Date: 20090719
  Serious: Yes (Hospitalization)
  Sender: FDA-Public Use
  Company Number: GB-ASTRAZENECA-2009GB00530

PATIENT
  Age: 43 Year
  Sex: Female
  Weight: 163.5 kg

DRUGS (22)
  1. LISINOPRIL [Suspect]
     Dosage: 20 MG
     Route: 048
     Dates: end: 20081013
  2. ACOMPLIA [Suspect]
     Indication: OBESITY
     Dosage: 20 MG
     Route: 048
     Dates: start: 20070629, end: 20081013
  3. IRBESARTAN [Suspect]
     Dosage: 150 MG
     Route: 048
     Dates: end: 20081013
  4. SPIRONOLACTONE [Suspect]
     Dosage: 50 MG
     Route: 048
     Dates: end: 20081013
  5. ASPIRIN [Concomitant]
     Indication: CARDIOVASCULAR EVENT PROPHYLAXIS
     Route: 048
  6. ATENOLOL [Concomitant]
     Dosage: 50 MG
     Route: 048
  7. ATORVASTATIN [Concomitant]
     Dosage: 80 MG
     Route: 048
  8. BISOPROLOL FUMARATE [Concomitant]
  9. CODEINE SUL TAB [Concomitant]
     Dosage: 120 MG
     Route: 048
  10. DILTIAZEM [Concomitant]
  11. FUROSEMIDE [Concomitant]
     Dosage: 40 MG
     Route: 048
  12. NITROGLYCERIN [Concomitant]
     Dosage: 400UG
     Route: 060
  13. ISOSORBIDE MONONITRATE [Concomitant]
     Dosage: 90MG
     Route: 048
  14. ISPAGHULA HUSK [Concomitant]
     Dosage: 2 DOSE FORMS
     Route: 048
  15. LIDOCAINE [Concomitant]
     Dosage: 2 %
     Route: 061
  16. NITRAZEPAM [Concomitant]
     Dosage: 5 MG
     Route: 048
  17. OMACOR [Concomitant]
     Route: 048
  18. OMEPRAZOLE [Concomitant]
     Route: 048
  19. PARACETAMOL [Concomitant]
     Dosage: 4G
     Route: 048
  20. QUININE SULFATE [Concomitant]
     Dosage: 300 MG
     Route: 048
  21. TRIMETHOPRIM [Concomitant]
     Dosage: 300 MG
     Route: 048
  22. VESICARE [Concomitant]

REACTIONS (14)
  - ATRIAL FIBRILLATION [None]
  - BACK PAIN [None]
  - DEHYDRATION [None]
  - DYSPEPSIA [None]
  - FEAR OF EATING [None]
  - GASTROOESOPHAGEAL REFLUX DISEASE [None]
  - HYPERTENSION [None]
  - NAUSEA [None]
  - OEDEMA [None]
  - OLIGURIA [None]
  - PYREXIA [None]
  - RECTAL HAEMORRHAGE [None]
  - RENAL FAILURE ACUTE [None]
  - WEIGHT INCREASED [None]
